FAERS Safety Report 7176669-8 (Version None)
Quarter: 2010Q4

REPORT INFORMATION
  Report Type: 
  Country: None (occurrence: None)
  Receive Date: 20101207
  Receipt Date: 20101123
  Transmission Date: 20110411
  Serious: Yes (Hospitalization, Other)
  Sender: FDA-Public Use
  Company Number: DSA_44446_2010

PATIENT
  Age: 30 Year
  Sex: Female

DRUGS (3)
  1. DILTIAZEM HYDROCHLORIDE [Suspect]
     Indication: INTENTIONAL OVERDOSE
     Dosage: NOT THE PRESCRIBED AMOUNT
  2. AMIODARONE HYDROCHLORIDE [Suspect]
     Indication: INTENTIONAL OVERDOSE
     Dosage: NOT THE PRESCRIBED AMOUNT
  3. METOPROLOL [Suspect]
     Indication: INTENTIONAL OVERDOSE
     Dosage: NOT THE PRESCRIBED AMOUNT

REACTIONS (6)
  - ABDOMINAL PAIN [None]
  - ANURIA [None]
  - CARDIOGENIC SHOCK [None]
  - CONFUSIONAL STATE [None]
  - EJECTION FRACTION DECREASED [None]
  - MULTIPLE DRUG OVERDOSE INTENTIONAL [None]
